FAERS Safety Report 8336768-1 (Version None)
Quarter: 2012Q2

REPORT INFORMATION
  Report Type: 
  Country: None (occurrence: None)
  Receive Date: 20120504
  Receipt Date: 20111215
  Transmission Date: 20120825
  Serious: Yes (Hospitalization)
  Sender: FDA-Public Use
  Company Number: CL-JNJFOC-20090802627

PATIENT
  Sex: Female
  Weight: 80 kg

DRUGS (30)
  1. GOLIMUMAB [Suspect]
     Route: 058
     Dates: start: 20080519
  2. GOLIMUMAB [Suspect]
     Route: 058
     Dates: start: 20080228
  3. GOLIMUMAB [Suspect]
     Route: 058
     Dates: start: 20081224
  4. GOLIMUMAB [Suspect]
     Route: 058
     Dates: start: 20090609
  5. GOLIMUMAB [Suspect]
     Route: 058
     Dates: start: 20080618
  6. GOLIMUMAB [Suspect]
     Route: 058
     Dates: start: 20080807
  7. GOLIMUMAB [Suspect]
     Route: 058
     Dates: start: 20081002
  8. GOLIMUMAB [Suspect]
     Route: 058
     Dates: start: 20071127
  9. GOLIMUMAB [Suspect]
     Route: 058
     Dates: start: 20081028
  10. PLACEBO [Suspect]
     Indication: RHEUMATOID ARTHRITIS
     Route: 058
     Dates: start: 20061005, end: 20070321
  11. OMEPRAZOLE [Concomitant]
     Route: 048
     Dates: start: 20060130
  12. GOLIMUMAB [Suspect]
     Route: 058
     Dates: start: 20090415
  13. GOLIMUMAB [Suspect]
     Route: 058
     Dates: start: 20090707
  14. GOLIMUMAB [Suspect]
     Route: 058
     Dates: start: 20071228
  15. MELOXICAM [Concomitant]
     Route: 048
     Dates: start: 20060130
  16. GOLIMUMAB [Suspect]
     Route: 058
     Dates: start: 20080902
  17. GOLIMUMAB [Suspect]
     Route: 058
     Dates: start: 20081127
  18. GOLIMUMAB [Suspect]
     Route: 058
     Dates: start: 20090318
  19. GOLIMUMAB [Suspect]
     Route: 058
     Dates: start: 20080123
  20. DEFLAZACORT [Concomitant]
     Route: 048
     Dates: start: 20061122
  21. GOLIMUMAB [Suspect]
     Route: 058
     Dates: start: 20080710
  22. GOLIMUMAB [Suspect]
     Route: 058
     Dates: start: 20090120
  23. GOLIMUMAB [Suspect]
     Route: 058
     Dates: start: 20080319
  24. GOLIMUMAB [Suspect]
     Route: 058
     Dates: start: 20070322
  25. GOLIMUMAB [Suspect]
     Route: 058
     Dates: start: 20071002
  26. METHOTREXATE [Concomitant]
     Route: 048
     Dates: start: 20080618
  27. GOLIMUMAB [Suspect]
     Indication: RHEUMATOID ARTHRITIS
     Route: 058
     Dates: start: 20080416
  28. GOLIMUMAB [Suspect]
     Route: 058
     Dates: start: 20071030
  29. METHOTREXATE [Suspect]
     Indication: RHEUMATOID ARTHRITIS
     Route: 048
     Dates: start: 20061005, end: 20070321
  30. FOLIC ACID [Concomitant]
     Route: 048
     Dates: start: 20040101

REACTIONS (1)
  - GASTROENTERITIS [None]
